FAERS Safety Report 23726253 (Version 1)
Quarter: 2024Q2

REPORT INFORMATION
  Report Type: Spontaneous
  Country: US (occurrence: US)
  Receive Date: 20240410
  Receipt Date: 20240410
  Transmission Date: 20240716
  Serious: Yes (Other)
  Sender: FDA-Public Use
  Company Number: US-BAUSCHBL-2024BNL004132

PATIENT
  Age: 47 Year
  Sex: Female

DRUGS (6)
  1. BRIMONIDINE TARTRATE [Suspect]
     Active Substance: BRIMONIDINE TARTRATE
     Indication: Adenocarcinoma of the cervix
     Route: 065
  2. BRIMONIDINE TARTRATE [Suspect]
     Active Substance: BRIMONIDINE TARTRATE
  3. TISOTUMAB VEDOTIN [Concomitant]
     Active Substance: TISOTUMAB VEDOTIN
     Indication: Adenocarcinoma of the cervix
  4. TISOTUMAB VEDOTIN [Concomitant]
     Active Substance: TISOTUMAB VEDOTIN
  5. TISOTUMAB VEDOTIN [Concomitant]
     Active Substance: TISOTUMAB VEDOTIN
  6. BEVACIZUMAB [Concomitant]
     Active Substance: BEVACIZUMAB
     Indication: Adenocarcinoma of the cervix

REACTIONS (1)
  - Allergic keratitis [Unknown]
